FAERS Safety Report 8267435-0 (Version None)
Quarter: 2012Q2

REPORT INFORMATION
  Report Type: 
  Country: None (occurrence: None)
  Receive Date: 20120409
  Receipt Date: 20120403
  Transmission Date: 20120825
  Serious: Yes (Hospitalization)
  Sender: FDA-Public Use
  Company Number: PHFR2012GB002093

PATIENT
  Age: 90 Year
  Sex: Female

DRUGS (2)
  1. CARBAMAZEPINE [Suspect]
     Indication: TRIGEMINAL NEURALGIA
     Dosage: 1 DF, DAILY
     Route: 048
     Dates: start: 20020207, end: 20020220
  2. HYPROMELLOSE [Concomitant]
     Dosage: UNK UKN, PRN (AS NECESSARY)

REACTIONS (3)
  - RASH GENERALISED [None]
  - CHAPPED LIPS [None]
  - LIP SWELLING [None]
